FAERS Safety Report 9875412 (Version 2)
Quarter: 2014Q1

REPORT INFORMATION
  Report Type: Other
  Country: US (occurrence: US)
  Receive Date: 20140206
  Receipt Date: 20140206
  Transmission Date: 20141002
  Serious: No
  Sender: FDA-Public Use
  Company Number: US-ACORDA-ACO_36792_2013

PATIENT
  Age: 56 Year
  Sex: Female

DRUGS (4)
  1. AMPYRA [Suspect]
     Indication: MULTIPLE SCLEROSIS
     Dosage: 10 MG, BID
     Route: 048
     Dates: start: 20110111, end: 201211
  2. AMPYRA [Suspect]
     Dosage: UNK
     Route: 048
  3. COPAXONE [Suspect]
     Indication: PRODUCT USED FOR UNKNOWN INDICATION
     Dosage: 20 MG, QD
     Route: 058
  4. COPAXONE [Suspect]
     Dosage: UNK
     Route: 058

REACTIONS (1)
  - Urticaria [Unknown]
